FAERS Safety Report 6084102-2 (Version None)
Quarter: 2009Q1

REPORT INFORMATION
  Report Type: 
  Country: None (occurrence: None)
  Receive Date: 20090219
  Receipt Date: 20090212
  Transmission Date: 20090719
  Serious: Yes (Death)
  Sender: FDA-Public Use
  Company Number: MX-MERCK-0902MEX00005

PATIENT
  Age: 65 Year
  Sex: Female

DRUGS (1)
  1. TIMOPTIC [Suspect]
     Indication: OCULAR HYPERTENSION
     Route: 047
     Dates: start: 20020101, end: 20020101

REACTIONS (1)
  - DEATH [None]
